FAERS Safety Report 15472313 (Version 1)
Quarter: 2018Q4

REPORT INFORMATION
  Report Type: Spontaneous
  Country: JP (occurrence: JP)
  Receive Date: 20181008
  Receipt Date: 20181008
  Transmission Date: 20190205
  Serious: Yes (Hospitalization, Other)
  Sender: FDA-Public Use
  Company Number: JP-REGENERON PHARMACEUTICALS, INC.-2018-37011

PATIENT

DRUGS (8)
  1. EYLEA [Suspect]
     Active Substance: AFLIBERCEPT
     Dosage: 0.05 ML, ONCE
     Route: 031
     Dates: start: 20180410, end: 20180410
  2. MEIACT [Concomitant]
     Active Substance: CEFDITOREN PIVOXIL
     Indication: INFECTION PROPHYLAXIS
     Dosage: DAILY DOSE 3 DF
     Route: 048
     Dates: start: 20180410, end: 20180412
  3. EYLEA [Suspect]
     Active Substance: AFLIBERCEPT
     Indication: RETINAL VEIN OCCLUSION
     Dosage: 0.05 ML, ONCE LEFT EYE
     Route: 031
     Dates: start: 20170802, end: 20170802
  4. KALLIKREIN [Concomitant]
     Active Substance: KALLIKREIN
     Indication: RETINAL VASCULAR DISORDER
     Dosage: DAILY DOSE 3 DF
     Route: 048
  5. CRAVIT [Concomitant]
     Active Substance: LEVOFLOXACIN
     Indication: INFECTION PROPHYLAXIS
     Dosage: UNK UNK, QID
     Route: 047
     Dates: start: 20180410, end: 20180417
  6. S. ADCHNON [Concomitant]
     Indication: HAEMOSTASIS
     Dosage: DAILY DOSE 3 DF
     Route: 048
     Dates: start: 20170728
  7. EYLEA [Suspect]
     Active Substance: AFLIBERCEPT
     Dosage: 0.05 ML, ONCE
     Route: 031
     Dates: start: 20171018, end: 20171018
  8. EYLEA [Suspect]
     Active Substance: AFLIBERCEPT
     Dosage: 0.05 ML, ONCE
     Route: 031
     Dates: start: 20180115, end: 20180115

REACTIONS (2)
  - Hemiplegia [Unknown]
  - Cerebral infarction [Recovered/Resolved with Sequelae]

NARRATIVE: CASE EVENT DATE: 2018
